FAERS Safety Report 15332121 (Version 1)
Quarter: 2018Q3

REPORT INFORMATION
  Report Type: Spontaneous
  Country: US (occurrence: US)
  Receive Date: 20180829
  Receipt Date: 20180829
  Transmission Date: 20181010
  Serious: No
  Sender: FDA-Public Use
  Company Number: US-SHIRE-US201717897

PATIENT
  Age: 47 Year
  Sex: Female

DRUGS (2)
  1. XIIDRA [Suspect]
     Active Substance: LIFITEGRAST
     Dosage: UNK
     Route: 047
  2. XIIDRA [Suspect]
     Active Substance: LIFITEGRAST
     Indication: DRY EYE
     Dosage: UNK
     Route: 047
     Dates: start: 20170512

REACTIONS (9)
  - Paraesthesia [Unknown]
  - Pruritus [Recovering/Resolving]
  - Pain of skin [Unknown]
  - Erythema [Unknown]
  - Eye inflammation [Unknown]
  - Blepharitis [Unknown]
  - Alopecia [Unknown]
  - Dizziness [Unknown]
  - Dysgeusia [Unknown]

NARRATIVE: CASE EVENT DATE: 20170513
